FAERS Safety Report 10230365 (Version 1)
Quarter: 2014Q2

REPORT INFORMATION
  Report Type: Spontaneous
  Country: US (occurrence: None)
  Receive Date: 20140610
  Receipt Date: 20140610
  Transmission Date: 20141212
  Serious: Yes (Other)
  Sender: FDA-Public Use
  Company Number: None

PATIENT
  Age: 69 Year
  Sex: Male
  Weight: 99.79 kg

DRUGS (1)
  1. BUPROPION HCL ER (XL) 24HR [Suspect]
     Indication: ANXIETY
     Route: 048
     Dates: start: 20140523, end: 20140609

REACTIONS (5)
  - Anxiety [None]
  - Drug ineffective [None]
  - Product substitution issue [None]
  - Product dosage form confusion [None]
  - Wrong drug administered [None]
